FAERS Safety Report 7295055-3 (Version None)
Quarter: 2011Q1

REPORT INFORMATION
  Report Type: 
  Country: None (occurrence: None)
  Receive Date: 20110216
  Receipt Date: 20110209
  Transmission Date: 20110831
  Serious: Yes (Other)
  Sender: FDA-Public Use
  Company Number: FR-AMGEN-FRASP2011007831

PATIENT
  Age: 47 Year
  Sex: Male

DRUGS (5)
  1. NEULASTA [Suspect]
     Indication: CHEMOTHERAPY
  2. IRINOTECAN [Concomitant]
     Dosage: UNK UNK, Q2WK
  3. OXALIPLATIN [Concomitant]
     Dosage: UNK UNK, Q2WK
  4. 5-FU                               /00098801/ [Concomitant]
     Dosage: UNK UNK, Q2WK
  5. LEUCOVORIN                         /00566701/ [Concomitant]
     Dosage: UNK UNK, Q2WK

REACTIONS (2)
  - THROMBOSIS MESENTERIC VESSEL [None]
  - LEUKOCYTOSIS [None]
